FAERS Safety Report 6212598-1 (Version None)
Quarter: 2009Q2

REPORT INFORMATION
  Report Type: 
  Country: None (occurrence: None)
  Receive Date: 20090602
  Receipt Date: 20090602
  Transmission Date: 20091009
  Serious: No
  Sender: FDA-Public Use
  Company Number: None

PATIENT
  Age: 37 Year
  Sex: Female
  Weight: 90.7 kg

DRUGS (1)
  1. CEFEPIME [Suspect]
     Dosage: 2 GM X1 IV
     Route: 042
     Dates: start: 20090525

REACTIONS (2)
  - FLUSHING [None]
  - RASH [None]
